FAERS Safety Report 5053848-7 (Version None)
Quarter: 2006Q3

REPORT INFORMATION
  Report Type: 
  Country: None (occurrence: None)
  Receive Date: 20060718
  Receipt Date: 20060713
  Transmission Date: 20061208
  Serious: Yes (Hospitalization)
  Sender: FDA-Public Use
  Company Number: ZA-GLAXOSMITHKLINE-B0431045A

PATIENT
  Sex: Male

DRUGS (1)
  1. ZYBAN [Suspect]
     Dates: start: 20060601, end: 20060709

REACTIONS (1)
  - LOCAL SWELLING [None]
